FAERS Safety Report 20074258 (Version 1)
Quarter: 2021Q4

REPORT INFORMATION
  Report Type: Report from Study
  Country: PT (occurrence: PT)
  Receive Date: 20211116
  Receipt Date: 20211116
  Transmission Date: 20220303
  Serious: Yes (Hospitalization)
  Sender: FDA-Public Use
  Company Number: PT-AMGEN-PRTCT2021178749

PATIENT
  Age: 59 Year
  Sex: Female
  Weight: 93.5 kg

DRUGS (9)
  1. PANITUMUMAB [Suspect]
     Active Substance: PANITUMUMAB
     Indication: Colorectal cancer metastatic
     Dosage: 528 MILLIGRAM, Q2WK
     Route: 042
     Dates: start: 20210713
  2. PANITUMUMAB [Suspect]
     Active Substance: PANITUMUMAB
     Dosage: 450 MILLIGRAM, Q2WK
     Route: 042
     Dates: end: 20210922
  3. OXALIPLATIN [Suspect]
     Active Substance: OXALIPLATIN
     Indication: Colorectal cancer metastatic
     Dosage: 170 MILLIGRAM, Q2WK
     Route: 042
     Dates: start: 20210713
  4. OXALIPLATIN [Suspect]
     Active Substance: OXALIPLATIN
     Dosage: 150 MILLIGRAM, Q2WK
     Route: 042
     Dates: end: 20210922
  5. FLUOROURACIL [Suspect]
     Active Substance: FLUOROURACIL
     Indication: Colorectal cancer metastatic
     Dosage: 4800 MILLIGRAM, Q2WK
     Route: 041
     Dates: start: 20210713, end: 20210922
  6. FLUOROURACIL [Suspect]
     Active Substance: FLUOROURACIL
     Dosage: 800 MILLIGRAM, Q2WK
     Route: 040
     Dates: start: 20210713
  7. FLUOROURACIL [Suspect]
     Active Substance: FLUOROURACIL
     Dosage: 740 MILLIGRAM, Q2WK
     Route: 040
     Dates: end: 20210922
  8. LEUCOVORIN [Suspect]
     Active Substance: LEUCOVORIN
     Indication: Colorectal cancer metastatic
     Dosage: 400 MILLIGRAM, Q2WK
     Route: 042
     Dates: start: 20210713
  9. LEUCOVORIN [Suspect]
     Active Substance: LEUCOVORIN
     Dosage: 370 MILLIGRAM, Q2WK
     Route: 042
     Dates: end: 20210922

REACTIONS (1)
  - Generalised oedema [Not Recovered/Not Resolved]

NARRATIVE: CASE EVENT DATE: 20211026
